FAERS Safety Report 4939236-X (Version None)
Quarter: 2006Q1

REPORT INFORMATION
  Report Type: 
  Country: None (occurrence: None)
  Receive Date: 20060306
  Receipt Date: 20060214
  Transmission Date: 20060701
  Serious: Yes (Death)
  Sender: FDA-Public Use
  Company Number: 2006-00359

PATIENT
  Age: 67 Year
  Sex: Female

DRUGS (2)
  1. VELCADE [Suspect]
     Indication: MULTIPLE MYELOMA
     Dates: start: 20050401, end: 20050101
  2. DEXAMETHASONE TAB [Concomitant]

REACTIONS (2)
  - METASTASES TO LIVER [None]
  - OESOPHAGEAL CARCINOMA [None]
